FAERS Safety Report 25584169 (Version 2)
Quarter: 2025Q3

REPORT INFORMATION
  Report Type: Spontaneous
  Country: US (occurrence: US)
  Receive Date: 20250721
  Receipt Date: 20250731
  Transmission Date: 20251021
  Serious: Yes (Hospitalization, Other)
  Sender: ALKEM
  Company Number: None

PATIENT
  Age: 66 Year
  Sex: Male

DRUGS (3)
  1. MYCOPHENOLATE MOFETIL [Suspect]
     Active Substance: MYCOPHENOLATE MOFETIL
     Indication: Immunosuppressant drug therapy
     Dosage: 360 MILLIGRAM, BID
     Route: 065
  2. TACROLIMUS [Suspect]
     Active Substance: TACROLIMUS
     Indication: Immunosuppressant drug therapy
     Dosage: 20 MILLIGRAM, QD (EXTENDED-RELEASE)
     Route: 065
  3. PREDNISONE [Suspect]
     Active Substance: PREDNISONE
     Indication: Immunosuppressant drug therapy
     Dosage: 5 MILLIGRAM, QD
     Route: 065

REACTIONS (7)
  - Malacoplakia [Recovering/Resolving]
  - Renal tubular injury [Recovering/Resolving]
  - Pyelonephritis [Recovering/Resolving]
  - Escherichia infection [Recovering/Resolving]
  - Cytomegalovirus viraemia [Unknown]
  - Asymptomatic bacteriuria [Recovering/Resolving]
  - Urinary tract infection [Unknown]
